FAERS Safety Report 24820617 (Version 1)
Quarter: 2025Q1

REPORT INFORMATION
  Report Type: Spontaneous
  Country: US (occurrence: None)
  Receive Date: 20250108
  Receipt Date: 20250108
  Transmission Date: 20250409
  Serious: Yes (Hospitalization)
  Sender: FDA-CTU
  Company Number: None

PATIENT
  Age: 46 Year
  Sex: Male

DRUGS (2)
  1. ADALIMUMAB-ADAZ [Suspect]
     Active Substance: ADALIMUMAB-ADAZ
     Route: 058
     Dates: start: 20230517, end: 20241213
  2. METHOTREXATE [Suspect]
     Active Substance: METHOTREXATE

REACTIONS (5)
  - Cough [None]
  - Night sweats [None]
  - Weight decreased [None]
  - Histoplasmosis [None]
  - Pneumonia [None]

NARRATIVE: CASE EVENT DATE: 20241104
